FAERS Safety Report 6653154-0 (Version None)
Quarter: 2010Q1

REPORT INFORMATION
  Report Type: 
  Country: None (occurrence: None)
  Receive Date: 20100326
  Receipt Date: 20100323
  Transmission Date: 20100710
  Serious: Yes (Death)
  Sender: FDA-Public Use
  Company Number: PHHY2010BR17664

PATIENT
  Sex: Male

DRUGS (4)
  1. DIOVAN [Suspect]
     Dosage: 320 MG, UNK
  2. DIOVAN HCT [Suspect]
     Dosage: 320/25 MG
  3. EXELON [Suspect]
     Dosage: 1.5 MG, UNK
  4. EXELON [Suspect]
     Dosage: 3 MG, UNK

REACTIONS (1)
  - DEATH [None]
